FAERS Safety Report 4745809-X (Version None)
Quarter: 2005Q3

REPORT INFORMATION
  Report Type: 
  Country: None (occurrence: None)
  Receive Date: 20050816
  Receipt Date: 20050727
  Transmission Date: 20060218
  Serious: Yes (Death)
  Sender: FDA-Public Use
  Company Number: JP-NOVOPROD-245962

PATIENT
  Age: 63 Year

DRUGS (1)
  1. NOVOLOG [Suspect]
     Indication: ILL-DEFINED DISORDER
     Route: 058
     Dates: start: 20030121, end: 20030701

REACTIONS (1)
  - HEPATIC CIRRHOSIS [None]
